FAERS Safety Report 4447331-7 (Version None)
Quarter: 2004Q3

REPORT INFORMATION
  Report Type: 
  Country: None (occurrence: None)
  Receive Date: 20040813
  Receipt Date: 20040618
  Transmission Date: 20050211
  Serious: No
  Sender: FDA-Public Use
  Company Number: S04-USA-03902-01

PATIENT
  Age: 88 Year
  Sex: Female

DRUGS (5)
  1. NAMENDA [Suspect]
     Indication: DEMENTIA ALZHEIMER'S TYPE
     Dosage: 5 MG BID PO
     Route: 048
     Dates: start: 20040617, end: 20040618
  2. NAMENDA [Suspect]
     Indication: DEMENTIA ALZHEIMER'S TYPE
     Dosage: 5 MG QD PO
     Route: 048
     Dates: start: 20040610, end: 20040617
  3. BLOOD PRESSURE MEDICATION [Concomitant]
  4. WATER PILL [Concomitant]
  5. THYROID MEDICATION [Concomitant]

REACTIONS (1)
  - URTICARIA [None]
